FAERS Safety Report 11806197 (Version 2)
Quarter: 2016Q2

REPORT INFORMATION
  Report Type: Spontaneous
  Country: HK (occurrence: HK)
  Receive Date: 20151207
  Receipt Date: 20160530
  Transmission Date: 20160815
  Serious: Yes (Hospitalization, Other)
  Sender: FDA-Public Use
  Company Number: HK-HOSPIRA-3096950

PATIENT
  Age: 10 Year
  Sex: Male

DRUGS (5)
  1. METHOTREXATE SODIUM. [Suspect]
     Active Substance: METHOTREXATE SODIUM
     Indication: ACUTE LYMPHOCYTIC LEUKAEMIA
  2. DEXAMETHASONE. [Suspect]
     Active Substance: DEXAMETHASONE
     Indication: ACUTE LYMPHOCYTIC LEUKAEMIA
  3. VINCRISTINE SULFATE. [Suspect]
     Active Substance: VINCRISTINE SULFATE
     Indication: ACUTE LYMPHOCYTIC LEUKAEMIA
  4. L-ASPARAGINASE [Suspect]
     Active Substance: ASPARAGINASE
     Indication: ACUTE LYMPHOCYTIC LEUKAEMIA
  5. DAUNORUBICIN HCL [Suspect]
     Active Substance: DAUNORUBICIN HYDROCHLORIDE
     Indication: ACUTE LYMPHOCYTIC LEUKAEMIA

REACTIONS (5)
  - Appendicitis [Recovered/Resolved]
  - Pancytopenia [Unknown]
  - Peritonitis [Recovered/Resolved]
  - Appendicitis perforated [Unknown]
  - Abscess [Unknown]
